FAERS Safety Report 23355708 (Version 2)
Quarter: 2024Q2

REPORT INFORMATION
  Report Type: Spontaneous
  Country: US (occurrence: US)
  Receive Date: 20240102
  Receipt Date: 20240401
  Transmission Date: 20240715
  Serious: No
  Sender: FDA-Public Use
  Company Number: US-APOTEX-2023AP016557

PATIENT
  Sex: Male

DRUGS (1)
  1. BRIMONIDINE TARTRATE [Suspect]
     Active Substance: BRIMONIDINE TARTRATE
     Indication: Product used for unknown indication
     Dosage: 2 DROPS IN LEFT EYE DAILY
     Route: 047

REACTIONS (3)
  - Extra dose administered [Unknown]
  - Product delivery mechanism issue [Unknown]
  - Product container issue [Unknown]

NARRATIVE: CASE EVENT DATE: 20231113
